FAERS Safety Report 5083839-1 (Version None)
Quarter: 2006Q3

REPORT INFORMATION
  Report Type: 
  Country: None (occurrence: None)
  Receive Date: 20060818
  Receipt Date: 20060301
  Transmission Date: 20061208
  Serious: Yes (Hospitalization)
  Sender: FDA-Public Use
  Company Number: JP-ABBOTT-06P-087-0326856-00

PATIENT
  Sex: Male

DRUGS (8)
  1. KALETRA [Suspect]
     Indication: HIV INFECTION
     Route: 048
     Dates: start: 20020401
  2. ZIDOVUDINE [Suspect]
     Indication: HIV INFECTION
     Route: 048
     Dates: start: 20020401
  3. ZIDOVUDINE [Suspect]
     Route: 048
     Dates: start: 20040401
  4. DIDANOSINE [Suspect]
     Indication: HIV INFECTION
     Route: 048
     Dates: start: 20020401
  5. DIDANOSINE [Suspect]
     Route: 048
     Dates: start: 20040402
  6. RURIOCTOCOG [Concomitant]
     Indication: HAEMOPHILIA
     Route: 042
     Dates: start: 20020401
  7. PEGASYS [Concomitant]
     Indication: HEPATITIS C
     Route: 058
     Dates: start: 20040912, end: 20040920
  8. PEGASYS [Concomitant]
     Route: 058
     Dates: start: 20040921, end: 20041207

REACTIONS (6)
  - BRONCHITIS CHRONIC [None]
  - DUODENAL ULCER HAEMORRHAGE [None]
  - DYSPNOEA EXERTIONAL [None]
  - GASTRITIS [None]
  - HAEMOGLOBIN DECREASED [None]
  - HYPERURICAEMIA [None]
